FAERS Safety Report 17371120 (Version 1)
Quarter: 2020Q1

REPORT INFORMATION
  Report Type: Spontaneous
  Country: JP (occurrence: JP)
  Receive Date: 20200205
  Receipt Date: 20200205
  Transmission Date: 20200409
  Serious: Yes (Death, Hospitalization, Other)
  Sender: FDA-Public Use
  Company Number: JP-SA-2020SA028730

PATIENT
  Age: 71 Year
  Sex: Male

DRUGS (5)
  1. VANCOMYCIN [Suspect]
     Active Substance: VANCOMYCIN
     Indication: ENDOCARDITIS
     Route: 042
  2. RIFAMPICIN [Suspect]
     Active Substance: RIFAMPIN
     Indication: ENDOCARDITIS
     Dosage: 600 MG, QD
  3. RIFAMPICIN [Suspect]
     Active Substance: RIFAMPIN
     Indication: ENDOCARDITIS BACTERIAL
  4. AMPICILLIN [Concomitant]
     Active Substance: AMPICILLIN
     Indication: ENDOCARDITIS ENTEROCOCCAL
     Route: 042
  5. VANCOMYCIN [Suspect]
     Active Substance: VANCOMYCIN
     Indication: ENDOCARDITIS BACTERIAL

REACTIONS (6)
  - Aortic pseudoaneurysm [Fatal]
  - Splenic artery aneurysm [Fatal]
  - Disease progression [Fatal]
  - Aneurysm ruptured [Fatal]
  - Cerebral haemorrhage [Fatal]
  - Treatment failure [Fatal]
